FAERS Safety Report 16348315 (Version 1)
Quarter: 2019Q2

REPORT INFORMATION
  Report Type: Spontaneous
  Country: US (occurrence: US)
  Receive Date: 20190417
  Receipt Date: 20190417
  Transmission Date: 20190711
  Serious: Yes (Hospitalization)
  Sender: FDA-Public Use
  Company Number: None

PATIENT
  Age: 62 Year
  Sex: Male
  Weight: 102.9 kg

DRUGS (4)
  1. OXALIPLATIN. [Suspect]
     Active Substance: OXALIPLATIN
  2. FLUOROURALCIL [Suspect]
     Active Substance: FLUOROURACIL
  3. LEUCOVORIN. [Suspect]
     Active Substance: LEUCOVORIN
  4. ABRAXANE [Suspect]
     Active Substance: PACLITAXEL

REACTIONS (1)
  - Ascites [None]

NARRATIVE: CASE EVENT DATE: 20190414
